FAERS Safety Report 12341922 (Version 2)
Quarter: 2016Q4

REPORT INFORMATION
  Report Type: Spontaneous
  Country: FR (occurrence: FR)
  Receive Date: 20160506
  Receipt Date: 20161116
  Transmission Date: 20170207
  Serious: Yes (Hospitalization, Other)
  Sender: FDA-Public Use
  Company Number: PHHY2016FR036568

PATIENT
  Age: 73 Year
  Sex: Female

DRUGS (5)
  1. POTASSIUM [Concomitant]
     Active Substance: POTASSIUM
     Indication: PRODUCT USED FOR UNKNOWN INDICATION
     Route: 065
  2. ENTRESTO [Suspect]
     Active Substance: SACUBITRIL\VALSARTAN
     Dosage: 2 DF (49/51 MG), QD
     Route: 065
     Dates: start: 20160401
  3. LASILIX [Suspect]
     Active Substance: FUROSEMIDE
     Dosage: 125 MG, UNK
     Route: 065
  4. ENTRESTO [Suspect]
     Active Substance: SACUBITRIL\VALSARTAN
     Indication: CARDIAC FAILURE
     Dosage: 50 MG (24/26 MG),BID
     Route: 065
     Dates: start: 201602
  5. LASILIX [Suspect]
     Active Substance: FUROSEMIDE
     Indication: PRODUCT USED FOR UNKNOWN INDICATION
     Dosage: UNK
     Route: 065

REACTIONS (18)
  - Blood creatinine increased [Recovering/Resolving]
  - Transaminases increased [Not Recovered/Not Resolved]
  - Gamma-glutamyltransferase increased [Unknown]
  - Renal failure [Unknown]
  - Blood urea increased [Unknown]
  - Polyuria [Unknown]
  - Alopecia [Not Recovered/Not Resolved]
  - Pruritus generalised [Unknown]
  - Cough [Not Recovered/Not Resolved]
  - Vomiting [Not Recovered/Not Resolved]
  - Cardiac failure [Unknown]
  - Hypotension [Not Recovered/Not Resolved]
  - Vertigo [Not Recovered/Not Resolved]
  - Erythema [Not Recovered/Not Resolved]
  - Haemoconcentration [Not Recovered/Not Resolved]
  - Pruritus [Not Recovered/Not Resolved]
  - Generalised oedema [Unknown]
  - Hypokalaemia [Not Recovered/Not Resolved]

NARRATIVE: CASE EVENT DATE: 20160825
